FAERS Safety Report 24065393 (Version 1)
Quarter: 2024Q3

REPORT INFORMATION
  Report Type: Other
  Country: GB (occurrence: GB)
  Receive Date: 20240709
  Receipt Date: 20240709
  Transmission Date: 20241017
  Serious: Yes (Other)
  Sender: NOVA LABORATORIES
  Company Number: GB-Nova Laboratories Limited-2158952

PATIENT
  Age: 33 Year
  Sex: Male

DRUGS (4)
  1. PURIXAN [Suspect]
     Active Substance: MERCAPTOPURINE
     Indication: Crohn^s disease
     Dates: start: 201302
  2. PREDNISOLONE [Suspect]
     Active Substance: PREDNISOLONE
     Dates: start: 2007
  3. MERCAPTOPURINE [Suspect]
     Active Substance: MERCAPTOPURINE
     Dates: end: 201604
  4. ADALIMUMAB [Suspect]
     Active Substance: ADALIMUMAB\ISOPROPYL ALCOHOL
     Dates: start: 2012

REACTIONS (3)
  - Hepatitis E [Recovered/Resolved]
  - Off label use [Unknown]
  - Chronic hepatitis [Recovered/Resolved]

NARRATIVE: CASE EVENT DATE: 20160401
